FAERS Safety Report 9792650 (Version 4)
Quarter: 2014Q4

REPORT INFORMATION
  Report Type: Report from Study
  Country: US (occurrence: US)
  Receive Date: 20140102
  Receipt Date: 20141114
  Transmission Date: 20150529
  Serious: Yes (Hospitalization, Other)
  Sender: FDA-Public Use
  Company Number: US-SANOFI-AVENTIS-2013SA006765

PATIENT
  Age: 61 Year
  Sex: Female

DRUGS (2)
  1. AUBAGIO [Suspect]
     Active Substance: TERIFLUNOMIDE
     Indication: MULTIPLE SCLEROSIS
     Route: 048
     Dates: start: 20130111
  2. NUVIGIL [Concomitant]
     Active Substance: ARMODAFINIL
     Route: 065

REACTIONS (14)
  - Vision blurred [Unknown]
  - Diarrhoea [Not Recovered/Not Resolved]
  - Urinary incontinence [Unknown]
  - Cough [Unknown]
  - Vocal cord disorder [Unknown]
  - Pain in extremity [Not Recovered/Not Resolved]
  - Migraine [Unknown]
  - Insomnia [Unknown]
  - Muscle spasms [Unknown]
  - Central nervous system lesion [Unknown]
  - Spinal fusion surgery [Unknown]
  - Sensation of foreign body [Unknown]
  - Balance disorder [Recovered/Resolved]
  - Multiple sclerosis [Unknown]

NARRATIVE: CASE EVENT DATE: 201301
